FAERS Safety Report 6667638-2 (Version None)
Quarter: 2010Q2

REPORT INFORMATION
  Report Type: 
  Country: None (occurrence: None)
  Receive Date: 20100405
  Receipt Date: 20100330
  Transmission Date: 20101027
  Serious: Yes (Hospitalization)
  Sender: FDA-Public Use
  Company Number: A0852671A

PATIENT
  Age: 63 Year
  Sex: Female

DRUGS (3)
  1. LAMICTAL CD [Suspect]
     Indication: EPILEPSY
     Dosage: 100MG TWICE PER DAY
     Route: 048
     Dates: start: 20060901
  2. PAROXETINE HCL [Suspect]
     Indication: DRUG USE FOR UNKNOWN INDICATION
     Dosage: 20MG PER DAY
     Route: 048
  3. KLONOPIN [Concomitant]

REACTIONS (6)
  - CONVULSION [None]
  - DEPRESSION [None]
  - DRUG INEFFECTIVE [None]
  - ENDOTRACHEAL INTUBATION [None]
  - FALL [None]
  - GRAND MAL CONVULSION [None]
